FAERS Safety Report 5601168-1 (Version None)
Quarter: 2008Q1

REPORT INFORMATION
  Report Type: 
  Country: None (occurrence: None)
  Receive Date: 20080122
  Receipt Date: 20080122
  Transmission Date: 20080703
  Serious: Yes (Hospitalization)
  Sender: FDA-Public Use
  Company Number: None

PATIENT
  Age: 51 Year
  Sex: Female
  Weight: 45 kg

DRUGS (25)
  1. PROPRANOLOL [Suspect]
     Indication: CACHEXIA
     Dosage: 70MG 40MGBREAKFAST, 20MG LUNCH, 10MG EVENING ORAL
     Route: 048
     Dates: start: 20070612, end: 20070626
  2. ETODOLAC [Suspect]
     Indication: CACHEXIA
     Dosage: 400MG 200MG BREAKFAST, 200MG EVENING ORAL
     Route: 048
     Dates: start: 20070626
  3. PANTOPRAZOLE [Concomitant]
  4. AMLODEPIN [Concomitant]
  5. CLOTRIMAZOLE [Concomitant]
  6. A-Z CAP MULTIVITAMINS [Concomitant]
  7. POVIDINE LODINE [Concomitant]
  8. LORAZEPAM [Concomitant]
  9. CARBAMAZEPINE [Concomitant]
  10. AMITRIPTILINE [Concomitant]
  11. CALCIUM GLUCONATE [Concomitant]
  12. FLUTICASONE + SALMETEROL [Concomitant]
  13. DICLOFENAC SODIUM [Concomitant]
  14. POTASSIUM CHLORIDE [Concomitant]
  15. FENTANYL TRANSDERMAL SYSTEM [Concomitant]
  16. ALBUTEROL [Concomitant]
  17. ANTACID TAB [Concomitant]
  18. LACTULOSE [Concomitant]
  19. ONDANSETRON [Concomitant]
  20. FUROSEMIDE [Concomitant]
  21. TRAMADOL HCL [Concomitant]
  22. MANNITOL [Concomitant]
  23. RANITIDINE [Concomitant]
  24. CLOTRIMAZOLE MOUTHWASH [Concomitant]
  25. DEXMEDETOMIDINE [Concomitant]

REACTIONS (5)
  - GASTROENTERITIS [None]
  - HYPERHIDROSIS [None]
  - PLATELET COUNT DECREASED [None]
  - RESPIRATORY DISTRESS [None]
  - VOMITING [None]
